FAERS Safety Report 8082782-3 (Version None)
Quarter: 2012Q1

REPORT INFORMATION
  Report Type: 
  Country: None (occurrence: None)
  Receive Date: 20120127
  Receipt Date: 20110214
  Transmission Date: 20120608
  Serious: No
  Sender: FDA-Public Use
  Company Number: US-ABBOTT-11P-163-0705013-00

PATIENT
  Sex: Male
  Weight: 90.8 kg

DRUGS (6)
  1. NAPROXEN [Concomitant]
     Indication: ARTHRALGIA
     Dosage: 8 IN 1 DAYS AS NEEDED
     Route: 048
  2. NAPROXEN [Concomitant]
     Indication: PSORIATIC ARTHROPATHY
  3. CLOBETASOL SOLUTION [Concomitant]
     Indication: PSORIASIS
     Route: 061
  4. HUMIRA [Suspect]
     Indication: PSORIASIS
     Route: 058
     Dates: start: 20080101, end: 20101201
  5. HUMIRA [Suspect]
     Indication: PSORIATIC ARTHROPATHY
     Route: 058
     Dates: start: 20050101, end: 20101201
  6. CLOBETASOL PROPIONATE [Concomitant]
     Indication: PSORIASIS
     Route: 061

REACTIONS (10)
  - PRURITUS [None]
  - SLEEP DISORDER [None]
  - OEDEMA PERIPHERAL [None]
  - PSORIATIC ARTHROPATHY [None]
  - HAEMORRHAGE [None]
  - DRUG INEFFECTIVE [None]
  - PSORIASIS [None]
  - ARTHRALGIA [None]
  - SKIN EXFOLIATION [None]
  - BACK PAIN [None]
